FAERS Safety Report 23299769 (Version 1)
Quarter: 2023Q4

REPORT INFORMATION
  Report Type: Spontaneous
  Country: US (occurrence: US)
  Receive Date: 20231215
  Receipt Date: 20231215
  Transmission Date: 20240110
  Serious: Yes (Other)
  Sender: FDA-Public Use
  Company Number: US-INFO-20230249

PATIENT
  Age: 61 Year
  Sex: Male

DRUGS (6)
  1. CIPROFLOXACIN [Suspect]
     Active Substance: CIPROFLOXACIN
  2. LANTUS SOLOSTAR [Concomitant]
     Active Substance: INSULIN GLARGINE
  3. ANASTROZOLE [Concomitant]
     Active Substance: ANASTROZOLE
  4. DOXYCYCLINE [Concomitant]
     Active Substance: DOXYCYCLINE
  5. LOSARTAN [Concomitant]
     Active Substance: LOSARTAN
  6. TESTOSTERONE [Concomitant]
     Active Substance: TESTOSTERONE

REACTIONS (1)
  - Neuropathy peripheral [Unknown]
